FAERS Safety Report 9428212 (Version 1)
Quarter: 2013Q3

REPORT INFORMATION
  Report Type: Spontaneous
  Country: US (occurrence: US)
  Receive Date: 20130730
  Receipt Date: 20130730
  Transmission Date: 20140515
  Serious: No
  Sender: FDA-Public Use
  Company Number: US-GLAXOSMITHKLINE-A0983801A

PATIENT
  Sex: Male
  Weight: 68.2 kg

DRUGS (3)
  1. ZANTAC [Suspect]
     Indication: DYSPEPSIA
     Route: 048
  2. PRILOSEC [Suspect]
     Indication: DYSPEPSIA
     Route: 065
     Dates: end: 201205
  3. PLAVIX [Suspect]
     Indication: BLOOD TEST ABNORMAL
     Dosage: 75MG UNKNOWN
     Route: 065
     Dates: start: 2009

REACTIONS (2)
  - Therapeutic response decreased [Unknown]
  - Drug interaction [Unknown]
